FAERS Safety Report 12078023 (Version 1)
Quarter: 2016Q1

REPORT INFORMATION
  Report Type: Spontaneous
  Country: IL (occurrence: IL)
  Receive Date: 20160215
  Receipt Date: 20160215
  Transmission Date: 20160526
  Serious: Yes (Hospitalization, Other)
  Sender: FDA-Public Use
  Company Number: IL-AKORN PHARMACEUTICALS-2016AKN00083

PATIENT

DRUGS (1)
  1. RIFAMPIN. [Suspect]
     Active Substance: RIFAMPIN
     Indication: CHORIORETINOPATHY
     Dosage: 300 MG, 2X/DAY
     Route: 048

REACTIONS (2)
  - Cholecystitis acute [Unknown]
  - Cholelithiasis [Unknown]
